FAERS Safety Report 15116480 (Version 1)
Quarter: 2018Q3

REPORT INFORMATION
  Report Type: Report from Study
  Country: CA (occurrence: CA)
  Receive Date: 20180706
  Receipt Date: 20180706
  Transmission Date: 20181010
  Serious: Yes (Hospitalization)
  Sender: FDA-Public Use
  Company Number: CA-JAZZ-2018-CA-010272

PATIENT
  Age: 4 Year
  Sex: Female
  Weight: 15.9 kg

DRUGS (1)
  1. CPX?351 [Suspect]
     Active Substance: CYTARABINE\DAUNORUBICIN
     Dosage: 269 U, UNK
     Route: 042
     Dates: start: 20171030, end: 20171103

REACTIONS (1)
  - Stridor [Recovering/Resolving]

NARRATIVE: CASE EVENT DATE: 20171114
